FAERS Safety Report 8921046 (Version 1)
Quarter: 2012Q4

REPORT INFORMATION
  Report Type: 
  Country: US (occurrence: US)
  Receive Date: 20121121
  Receipt Date: 20121121
  Transmission Date: 20130627
  Serious: Yes (Other)
  Sender: FDA-Public Use
  Company Number: US-ELI_LILLY_AND_COMPANY-US201211003890

PATIENT
  Sex: Female

DRUGS (2)
  1. STRATTERA [Suspect]
     Indication: ATTENTION DEFICIT/HYPERACTIVITY DISORDER
     Dosage: 100 mg, unknown
     Route: 065
  2. FLUOXETINE [Concomitant]
     Dosage: UNK, unknown
     Route: 065

REACTIONS (2)
  - Obesity surgery [Unknown]
  - Weight decreased [Unknown]
